FAERS Safety Report 14928578 (Version 2)
Quarter: 2018Q2

REPORT INFORMATION
  Report Type: Report from Study
  Country: PL (occurrence: PL)
  Receive Date: 20180523
  Receipt Date: 20180613
  Transmission Date: 20180711
  Serious: Yes (Hospitalization, Other)
  Sender: FDA-Public Use
  Company Number: PL-ASTRAZENECA-2018SE64577

PATIENT
  Age: 25633 Day
  Sex: Male

DRUGS (20)
  1. AZD6140 [Suspect]
     Active Substance: TICAGRELOR
     Indication: CARDIOVASCULAR EVENT PROPHYLAXIS
     Route: 048
     Dates: start: 20161116, end: 20180227
  2. CYCLO 3 FORT [Concomitant]
     Active Substance: ASCORBIC ACID\HESPERIDIN METHYLCHALCONE\RUSCUS ACULEATUS ROOT
     Indication: PERIPHERAL VENOUS DISEASE
     Route: 048
     Dates: start: 20160225, end: 20170306
  3. AZD6140 [Suspect]
     Active Substance: TICAGRELOR
     Indication: CARDIOVASCULAR EVENT PROPHYLAXIS
     Route: 048
     Dates: start: 20151127, end: 20161107
  4. HYDROCHLOROTHIAZYDUM [Concomitant]
     Indication: HYPERTENSION
     Route: 048
     Dates: start: 20170915
  5. VENORUTON [Concomitant]
     Active Substance: TROXERUTIN
     Indication: PERIPHERAL VENOUS DISEASE
     Route: 048
  6. TULIP [Concomitant]
     Indication: PROPHYLAXIS
     Route: 048
     Dates: end: 20180227
  7. AMLOPIN [Concomitant]
     Active Substance: AMLODIPINE BESYLATE
     Indication: HYPERTENSION
     Route: 048
  8. CYCLO 3 FORT [Concomitant]
     Active Substance: ASCORBIC ACID\HESPERIDIN METHYLCHALCONE\RUSCUS ACULEATUS ROOT
     Indication: PERIPHERAL VENOUS DISEASE
     Route: 048
     Dates: start: 20170522
  9. XARINE [Concomitant]
     Indication: PERIPHERAL VENOUS DISEASE
     Route: 048
     Dates: start: 20151127
  10. AZD6140 [Suspect]
     Active Substance: TICAGRELOR
     Indication: CARDIOVASCULAR EVENT PROPHYLAXIS
     Route: 048
     Dates: start: 20150828, end: 20151127
  11. IPP [Concomitant]
     Active Substance: PANTOPRAZOLE SODIUM
     Indication: PROPHYLAXIS
     Route: 048
     Dates: start: 20180227, end: 20180514
  12. KETONAL [Concomitant]
     Active Substance: KETOPROFEN
     Indication: PERIPHERAL VENOUS DISEASE
     Dosage: 2 APPLICATIONS, DAILY
     Route: 003
     Dates: start: 20160225
  13. CONTIX [Concomitant]
     Indication: PERIPHERAL VENOUS DISEASE
     Route: 048
     Dates: start: 20180514
  14. MOLSIDOMINA [Concomitant]
     Active Substance: MOLSIDOMINE
     Indication: HYPERTENSION
     Dosage: 8.0MG UNKNOWN
     Route: 048
  15. SPIRONOL [Concomitant]
     Active Substance: SPIRONOLACTONE
     Indication: PERIPHERAL VENOUS DISEASE
     Route: 048
  16. IPP [Concomitant]
     Active Substance: PANTOPRAZOLE SODIUM
     Indication: PROPHYLAXIS
     Route: 048
  17. CONCOR [Concomitant]
     Active Substance: BISOPROLOL FUMARATE
     Indication: HYPERTENSION
     Route: 048
  18. CONTIX [Concomitant]
     Indication: PERIPHERAL VENOUS DISEASE
     Route: 048
     Dates: start: 20170306, end: 20180227
  19. SIOFOR [Concomitant]
     Active Substance: METFORMIN HYDROCHLORIDE
     Indication: TYPE 2 DIABETES MELLITUS
     Route: 048
  20. LYMPHOMYOSOT [Concomitant]
     Indication: PERIPHERAL VENOUS DISEASE
     Route: 048
     Dates: start: 20160118

REACTIONS (1)
  - Acute coronary syndrome [Recovered/Resolved]

NARRATIVE: CASE EVENT DATE: 20180227
